FAERS Safety Report 14959129 (Version 2)
Quarter: 2018Q2

REPORT INFORMATION
  Report Type: Spontaneous
  Country: JP (occurrence: JP)
  Receive Date: 20180531
  Receipt Date: 20180612
  Transmission Date: 20180711
  Serious: Yes (Life-Threatening, Hospitalization)
  Sender: FDA-Public Use
  Company Number: JP-MYLANLABS-2018M1036152

PATIENT
  Age: 23 Year
  Sex: Male
  Weight: 60 kg

DRUGS (4)
  1. CARBAMAZEPINE. [Interacting]
     Active Substance: CARBAMAZEPINE
     Indication: EPILEPSY
     Dosage: REGULAR DOSE FOR EPILEPSY
     Route: 048
  2. CARBAMAZEPINE. [Interacting]
     Active Substance: CARBAMAZEPINE
     Dosage: HE INGESTED 100 TABLETS OF 100MG EACH FOR OVERDOSE; TOTAL INGESTION OF 10G
     Route: 048
  3. CARBAMAZEPINE. [Suspect]
     Active Substance: CARBAMAZEPINE
     Dosage: HE INGESTED 100 TABLETS OF 100MG EACH FOR OVERDOSE; TOTAL INGESTION OF 10G
     Route: 048
  4. CARBAMAZEPINE. [Suspect]
     Active Substance: CARBAMAZEPINE
     Indication: EPILEPSY
     Dosage: REGULAR DOSE FOR EPILEPSY
     Route: 048

REACTIONS (7)
  - Defaecation disorder [Recovered/Resolved]
  - Overdose [Recovered/Resolved]
  - Toxicity to various agents [Recovered/Resolved]
  - Restlessness [Recovered/Resolved]
  - Labelled drug-food interaction medication error [Recovered/Resolved]
  - Gastrointestinal hypomotility [Recovered/Resolved]
  - Altered state of consciousness [Recovered/Resolved]
